FAERS Safety Report 21929408 (Version 1)
Quarter: 2023Q1

REPORT INFORMATION
  Report Type: Spontaneous
  Country: US (occurrence: US)
  Receive Date: 20230131
  Receipt Date: 20230131
  Transmission Date: 20230418
  Serious: Yes (Other)
  Sender: FDA-Public Use
  Company Number: US-UCBSA-2022028183

PATIENT
  Age: 52 Year
  Sex: Female

DRUGS (5)
  1. LEVETIRACETAM [Suspect]
     Active Substance: LEVETIRACETAM
     Indication: Seizure prophylaxis
     Dosage: 500 MILLIGRAM, 2X/DAY (BID)
     Route: 048
  2. LEVETIRACETAM [Suspect]
     Active Substance: LEVETIRACETAM
     Indication: Off label use
     Dosage: 1000 MILLIGRAM 2X/DAY (BID)
  3. METHOTREXATE [Concomitant]
     Active Substance: METHOTREXATE
     Indication: Central nervous system lymphoma
     Dosage: 3.5 GRAM PER SQUARE METRE EVERY 2 WEEKS FOR 6 CYCLES
  4. RITUXIMAB [Concomitant]
     Active Substance: RITUXIMAB
     Indication: Central nervous system lymphoma
     Dosage: 375 MILLIGRAM/SQ. METER FOR 4 CYCLES, THENEVERY 2 WEEKS FOR 2 ADDITIONAL CYCLES
  5. DEXAMETHASONE [Concomitant]
     Active Substance: DEXAMETHASONE
     Indication: Product used for unknown indication
     Dosage: 2 MILLIGRAM DAILY

REACTIONS (2)
  - Seizure [Unknown]
  - Off label use [Unknown]
